FAERS Safety Report 19412915 (Version 1)
Quarter: 2021Q2

REPORT INFORMATION
  Report Type: Spontaneous
  Country: GB (occurrence: GB)
  Receive Date: 20210614
  Receipt Date: 20210614
  Transmission Date: 20210717
  Serious: Yes (Other)
  Sender: FDA-Public Use
  Company Number: GB-LUPIN PHARMACEUTICALS INC.-2021-09325

PATIENT
  Age: 29 Year
  Sex: Female

DRUGS (7)
  1. SULFAPYRIDINE. [Concomitant]
     Active Substance: SULFAPYRIDINE
     Indication: LINEAR IGA DISEASE
     Dosage: INITIAL DOSE UNKNOWN; SIDE EFFECT (VOMITING) APPEARED WHEN THE DOSE EXCEEDED 500MG TWICE A DAY
     Route: 065
  2. SULFAPYRIDINE. [Concomitant]
     Active Substance: SULFAPYRIDINE
     Dosage: 500 MILLIGRAM, BID SIDE EFFECT (VOMITING) APPEARED WHEN THE DOSE EXCEEDED 500MG TWICE A DAY
     Route: 065
  3. DAPSONE. [Concomitant]
     Active Substance: DAPSONE
     Dosage: 125 MILLIGRAM, QD MAXIMAL DAILY DOSE
     Route: 065
  4. DOXYCYCLINE. [Suspect]
     Active Substance: DOXYCYCLINE
     Indication: LINEAR IGA DISEASE
     Dosage: 100 MILLIGRAM, BID (LONG?TERM)
     Route: 065
  5. PREDNISOLONE. [Concomitant]
     Active Substance: PREDNISOLONE
     Indication: LINEAR IGA DISEASE
     Dosage: 60 MILLIGRAM, QD
     Route: 065
  6. PREDNISOLONE. [Concomitant]
     Active Substance: PREDNISOLONE
     Dosage: 10 MILLIGRAM, QD
     Route: 065
  7. DAPSONE. [Concomitant]
     Active Substance: DAPSONE
     Indication: LINEAR IGA DISEASE
     Dosage: UNK  REDUCED BY HALF AT THE INITIATION OF TWICE?DAILY
     Route: 065

REACTIONS (1)
  - Drug ineffective [Unknown]
